FAERS Safety Report 16289624 (Version 4)
Quarter: 2019Q3

REPORT INFORMATION
  Report Type: Spontaneous
  Country: DE (occurrence: DE)
  Receive Date: 20190509
  Receipt Date: 20190903
  Transmission Date: 20191004
  Serious: Yes (Hospitalization, Other)
  Sender: FDA-Public Use
  Company Number: DE-HIKMA PHARMACEUTICALS USA INC.-DE-H14001-19-03010

PATIENT
  Age: 18 Year
  Sex: Female

DRUGS (10)
  1. ETOPOSIDE. [Suspect]
     Active Substance: ETOPOSIDE
     Indication: PRIMITIVE NEUROECTODERMAL TUMOUR
     Route: 065
     Dates: start: 201001, end: 201002
  2. VINCRISTINE [Suspect]
     Active Substance: VINCRISTINE
     Indication: METASTATIC NEOPLASM
     Route: 065
     Dates: start: 201002, end: 201003
  3. IFOSFAMIDE. [Suspect]
     Active Substance: IFOSFAMIDE
     Indication: PRIMITIVE NEUROECTODERMAL TUMOUR
     Route: 065
     Dates: start: 201001, end: 201002
  4. ACTINOMYCIN D [Suspect]
     Active Substance: DACTINOMYCIN
     Indication: METASTATIC NEOPLASM
  5. ETOPOSIDE. [Suspect]
     Active Substance: ETOPOSIDE
     Indication: METASTATIC NEOPLASM
     Route: 065
     Dates: start: 201002, end: 201003
  6. ACTINOMYCIN D [Suspect]
     Active Substance: DACTINOMYCIN
     Indication: PRIMITIVE NEUROECTODERMAL TUMOUR
     Route: 065
     Dates: start: 201001, end: 201002
  7. CARBOPLATIN. [Suspect]
     Active Substance: CARBOPLATIN
     Indication: PRIMITIVE NEUROECTODERMAL TUMOUR
     Route: 065
     Dates: start: 201001, end: 201002
  8. CARBOPLATIN. [Suspect]
     Active Substance: CARBOPLATIN
     Indication: METASTATIC NEOPLASM
     Route: 065
     Dates: start: 201002, end: 201003
  9. VINCRISTINE [Suspect]
     Active Substance: VINCRISTINE
     Indication: PRIMITIVE NEUROECTODERMAL TUMOUR
     Route: 065
     Dates: start: 201001, end: 201002
  10. IFOSFAMIDE. [Suspect]
     Active Substance: IFOSFAMIDE
     Indication: METASTATIC NEOPLASM

REACTIONS (6)
  - Nausea [Recovered/Resolved]
  - General physical health deterioration [Recovering/Resolving]
  - Abdominal pain [Recovered/Resolved]
  - Vomiting [Recovered/Resolved]
  - Constipation [Recovered/Resolved]
  - Weight decreased [Unknown]

NARRATIVE: CASE EVENT DATE: 2010
